FAERS Safety Report 4842907-7 (Version None)
Quarter: 2005Q4

REPORT INFORMATION
  Report Type: 
  Country: None (occurrence: None)
  Receive Date: 20051130
  Receipt Date: 20051118
  Transmission Date: 20060501
  Serious: Yes (Death, Life-Threatening, Other)
  Sender: FDA-Public Use
  Company Number: 2005JP002184

PATIENT
  Sex: Male

DRUGS (6)
  1. PROGRAF [Suspect]
     Indication: RHEUMATOID ARTHRITIS
     Dosage: 2.00 MG, ORAL
     Route: 048
     Dates: start: 20050701, end: 20050916
  2. PREDNISONE [Suspect]
     Dosage: 12.50 MG, ORAL
     Route: 048
     Dates: start: 19980101
  3. ALFAROL (ALFACALCIDOL) [Concomitant]
  4. RABEPRAZOLE SODIUM [Concomitant]
  5. LASIX [Concomitant]
  6. VOLTAREN [Concomitant]

REACTIONS (5)
  - AMYLOIDOSIS [None]
  - DISSEMINATED INTRAVASCULAR COAGULATION [None]
  - GUILLAIN-BARRE SYNDROME [None]
  - PNEUMOCYSTIS JIROVECI PNEUMONIA [None]
  - RENAL FAILURE ACUTE [None]
